FAERS Safety Report 7561884-1 (Version None)
Quarter: 2011Q2

REPORT INFORMATION
  Report Type: 
  Country: None (occurrence: None)
  Receive Date: 20110621
  Receipt Date: 20110609
  Transmission Date: 20111010
  Serious: Yes (Hospitalization, Other)
  Sender: FDA-Public Use
  Company Number: PHHY2009CA40543

PATIENT
  Sex: Male

DRUGS (15)
  1. REACTINE [Concomitant]
     Dosage: 10 MG, QD
     Route: 048
  2. LORAZEPAM [Concomitant]
     Dosage: UNK
  3. EXJADE [Suspect]
     Dosage: 2500 MG, QD
     Route: 048
     Dates: start: 20080501
  4. EXJADE [Suspect]
     Indication: IRON OVERLOAD
     Dosage: 1500 MG, QD
     Route: 048
     Dates: start: 20080101
  5. EXJADE [Suspect]
     Dosage: 2000 MG, UNK
     Dates: start: 20091101
  6. SILDENAFIL CITRATE [Concomitant]
  7. ANDROGEL [Concomitant]
  8. EXJADE [Suspect]
     Indication: THALASSAEMIA
     Dosage: 2.5 G, UNK
     Route: 048
     Dates: start: 20080107
  9. RISEDRONIC ACID [Concomitant]
  10. EXJADE [Suspect]
     Dosage: 2000 MG, QD
     Route: 048
     Dates: start: 20080101
  11. VITAMIN D [Concomitant]
     Dosage: 1000 IU, QD
     Route: 048
  12. MAGNESIUM [Concomitant]
  13. FOLIC ACID [Concomitant]
     Dosage: 5 MG, QD
     Route: 048
  14. ACTONEL [Concomitant]
  15. CALCIUM CARBONATE [Concomitant]

REACTIONS (16)
  - INSOMNIA [None]
  - TIBIA FRACTURE [None]
  - PULMONARY FIBROSIS [None]
  - ORAL CANDIDIASIS [None]
  - DIARRHOEA [None]
  - OEDEMA PERIPHERAL [None]
  - PRURITUS GENERALISED [None]
  - HEADACHE [None]
  - URTICARIA [None]
  - DENTAL CARIES [None]
  - TOOTHACHE [None]
  - SERUM FERRITIN INCREASED [None]
  - PULMONARY HYPERTENSION [None]
  - STRESS [None]
  - FALL [None]
  - ABDOMINAL DISCOMFORT [None]
